FAERS Safety Report 5130647-9 (Version None)
Quarter: 2006Q4

REPORT INFORMATION
  Report Type: 
  Country: None (occurrence: None)
  Receive Date: 20061017
  Receipt Date: 20061017
  Transmission Date: 20070319
  Serious: Yes (Life-Threatening, Hospitalization)
  Sender: FDA-Public Use
  Company Number: None

PATIENT
  Age: 46 Year
  Sex: Female
  Weight: 65.7716 kg

DRUGS (1)
  1. TOPAMAX [Suspect]
     Indication: MIGRAINE PROPHYLAXIS
     Dosage: 100 MG 4 TIMES DAY ORAL
     Route: 048

REACTIONS (6)
  - ARRHYTHMIA [None]
  - BLOOD POTASSIUM DECREASED [None]
  - BLOOD PRESSURE DECREASED [None]
  - DEHYDRATION [None]
  - PAIN [None]
  - PANCREATITIS ACUTE [None]
